FAERS Safety Report 11857604 (Version 1)
Quarter: 2015Q4

REPORT INFORMATION
  Report Type: Spontaneous
  Country: US (occurrence: None)
  Receive Date: 20151221
  Receipt Date: 20151221
  Transmission Date: 20160305
  Serious: Yes (Other)
  Sender: FDA-Public Use
  Company Number: None

PATIENT
  Age: 24 Year
  Sex: Female

DRUGS (6)
  1. VISTARIL [Concomitant]
     Active Substance: HYDROXYZINE PAMOATE
  2. LOXAPINE 5MG Q2PM /25MG HS [Suspect]
     Active Substance: LOXAPINE
     Indication: INSOMNIA
     Route: 048
     Dates: start: 20151207, end: 20151209
  3. NICOTINE. [Concomitant]
     Active Substance: NICOTINE
  4. ZOLOFT [Concomitant]
     Active Substance: SERTRALINE HYDROCHLORIDE
  5. ZOFRAN ODT [Concomitant]
     Active Substance: ONDANSETRON HYDROCHLORIDE
  6. LOXAPINE 5MG Q2PM /25MG HS [Suspect]
     Active Substance: LOXAPINE
     Indication: ANXIETY
     Route: 048
     Dates: start: 20151207, end: 20151209

REACTIONS (3)
  - Bruxism [None]
  - Trismus [None]
  - Pain in jaw [None]

NARRATIVE: CASE EVENT DATE: 20151209
